FAERS Safety Report 21516024 (Version 2)
Quarter: 2022Q4

REPORT INFORMATION
  Report Type: Spontaneous
  Country: CA (occurrence: CA)
  Receive Date: 20221027
  Receipt Date: 20221108
  Transmission Date: 20230113
  Serious: Yes (Hospitalization, Other)
  Sender: FDA-Public Use
  Company Number: CA-TEVA-2022-CA-2818695

PATIENT
  Sex: Male

DRUGS (21)
  1. METFORMIN [Suspect]
     Active Substance: METFORMIN HYDROCHLORIDE
     Indication: Diabetes mellitus
     Dosage: 1000 MILLIGRAM DAILY;
     Route: 065
  2. OLANZAPINE [Suspect]
     Active Substance: OLANZAPINE
     Indication: Antipsychotic therapy
     Dosage: UP TO 15MG AT BEDTIME
     Route: 065
     Dates: start: 2020
  3. PANTOPRAZOLE SODIUM [Suspect]
     Active Substance: PANTOPRAZOLE SODIUM
     Indication: Gastrooesophageal reflux disease
     Dosage: 40 MILLIGRAM DAILY;
     Route: 065
     Dates: start: 2009
  4. PROPRANOLOL [Suspect]
     Active Substance: PROPRANOLOL HYDROCHLORIDE
     Indication: Product used for unknown indication
     Dosage: RECEIVED 3 TIMES DAILY
     Route: 065
  5. QUETIAPINE [Suspect]
     Active Substance: QUETIAPINE
     Indication: Sleep disorder
     Dosage: RECEIVED UP TO 75MG AT BEDTIME
     Route: 065
     Dates: start: 2020
  6. RISPERIDONE [Suspect]
     Active Substance: RISPERIDONE
     Indication: Antipsychotic therapy
     Dosage: 4 MILLIGRAM DAILY;
     Route: 065
     Dates: start: 2020
  7. ASENAPINE [Suspect]
     Active Substance: ASENAPINE
     Indication: Antipsychotic therapy
     Dosage: 5 MILLIGRAM DAILY; AT BEDTIME
     Route: 060
     Dates: start: 2019
  8. CANAGLIFLOZIN [Suspect]
     Active Substance: CANAGLIFLOZIN
     Indication: Diabetes mellitus
     Dosage: 100 MILLIGRAM DAILY; IN THE MORNING
     Route: 065
  9. CLONAZEPAM [Suspect]
     Active Substance: CLONAZEPAM
     Indication: Anxiety
     Dosage: .5 MILLIGRAM DAILY;
     Route: 065
  10. CLONAZEPAM [Suspect]
     Active Substance: CLONAZEPAM
     Dosage: .5 MILLIGRAM DAILY; AT BEDTIME
     Route: 065
  11. CLONAZEPAM [Suspect]
     Active Substance: CLONAZEPAM
     Dosage: PER COMMUNITY PHARMACY, TAKEN REGULARLY
     Route: 065
  12. LAMOTRIGINE [Suspect]
     Active Substance: LAMOTRIGINE
     Indication: Affective disorder
     Dosage: 300 MILLIGRAM DAILY;
     Route: 065
  13. LITHIUM [Suspect]
     Active Substance: LITHIUM
     Indication: Affective disorder
     Dosage: 900 MILLIGRAM DAILY;
     Route: 065
  14. PREGABALIN [Suspect]
     Active Substance: PREGABALIN
     Indication: Anxiety
     Dosage: 150 MILLIGRAM DAILY;
     Route: 065
  15. VENLAFAXINE [Suspect]
     Active Substance: VENLAFAXINE HYDROCHLORIDE
     Indication: Anxiety
     Dosage: 112.5 MILLIGRAM DAILY;
     Route: 065
  16. VENLAFAXINE [Suspect]
     Active Substance: VENLAFAXINE HYDROCHLORIDE
     Indication: Depression
  17. ZOPICLONE [Suspect]
     Active Substance: ZOPICLONE
     Indication: Insomnia
     Dosage: AT BEDTIME AND DURING THE DAY IF REQUIRED
     Route: 065
  18. ASPIRIN [Concomitant]
     Active Substance: ASPIRIN
     Indication: Myocardial infarction
     Dosage: 81 MILLIGRAM DAILY; IN THE MORNING
     Route: 065
     Dates: start: 2010
  19. ATORVASTATIN [Concomitant]
     Active Substance: ATORVASTATIN
     Indication: Myocardial infarction
     Dosage: 80 MILLIGRAM DAILY;
     Route: 065
     Dates: start: 2010
  20. NITROGLYCERIN [Concomitant]
     Active Substance: NITROGLYCERIN
     Indication: Chest pain
     Route: 065
     Dates: start: 2010
  21. RAMIPRIL [Concomitant]
     Active Substance: RAMIPRIL
     Indication: Myocardial infarction
     Dosage: 10 MILLIGRAM DAILY;
     Route: 065
     Dates: start: 2010

REACTIONS (8)
  - Depression [Recovered/Resolved]
  - Suicidal ideation [Unknown]
  - Hallucination, visual [Recovered/Resolved]
  - Hallucination, auditory [Recovered/Resolved]
  - Psychotic disorder [Recovered/Resolved]
  - Diabetes mellitus [Unknown]
  - Hypoglycaemia [Unknown]
  - Product prescribing error [Recovering/Resolving]
